FAERS Safety Report 15560324 (Version 1)
Quarter: 2018Q4

REPORT INFORMATION
  Report Type: Spontaneous
  Country: GB (occurrence: GB)
  Receive Date: 20181029
  Receipt Date: 20181029
  Transmission Date: 20190205
  Serious: Yes (Other)
  Sender: FDA-Public Use
  Company Number: GB-NOVOPROD-618370

PATIENT
  Age: 55 Year
  Sex: Male
  Weight: 86 kg

DRUGS (15)
  1. GLUCAGEN HYPOKIT [Suspect]
     Active Substance: GLUCAGON HYDROCHLORIDE
     Indication: LOSS OF CONSCIOUSNESS
  2. RAMIPRIL. [Concomitant]
     Active Substance: RAMIPRIL
     Dosage: 2.5 MG, QD
     Route: 065
  3. EMPAGLIFLOZIN [Concomitant]
     Active Substance: EMPAGLIFLOZIN
     Dosage: 10 MG, QD
     Route: 065
  4. FOSTAIR [Concomitant]
     Active Substance: BECLOMETHASONE\FORMOTEROL
     Dosage: 120 DOSE, ONE OR TWO PUFFS TO BE INHALED TWICE A DAY
     Route: 065
  5. TRESIBA FLEXTOUCH U200 [Concomitant]
     Active Substance: INSULIN DEGLUDEC
     Indication: TYPE 2 DIABETES MELLITUS
     Dosage: 125 U, QD (AT LUNCHTIME)
     Route: 065
  6. MORPHINE [Concomitant]
     Active Substance: MORPHINE
     Dosage: 10 MG, MODIFIED RELEASE TABLETS, TWO TO BE TAKEN EVERY 12 HOURS
     Route: 065
  7. OMEPRAZOLE. [Concomitant]
     Active Substance: OMEPRAZOLE
     Dosage: 20 MG, BID (GASTRO-RESISTANT CAPSULES)
     Route: 065
  8. HUMULIN R [Concomitant]
     Active Substance: INSULIN HUMAN
     Dosage: UNK
     Route: 065
  9. TERBUTALINE [Concomitant]
     Active Substance: TERBUTALINE
     Dosage: 500 UG  DRY POWDER INHALER, INHALE 1 DOSE AS NEEDED
     Route: 055
  10. TRAZODONE [Concomitant]
     Active Substance: TRAZODONE HYDROCHLORIDE
     Dosage: 100 MG, QD (ONE TO BE TAKEN AT NIGHT)
     Route: 065
  11. BEZAFIBRATE [Concomitant]
     Active Substance: BEZAFIBRATE
     Dosage: 200 MG, TID (TABLETS TO BE TAKEN TID AFTER FOOD)
     Route: 065
  12. SENNA                              /00142201/ [Concomitant]
     Active Substance: SENNA LEAF
     Dosage: 7.5 MG  TABLETS, TAKE 1 OR 2 AT NIGHT
     Route: 065
  13. GLUCAGEN HYPOKIT [Suspect]
     Active Substance: GLUCAGON HYDROCHLORIDE
     Indication: HYPOGLYCAEMIA
     Dosage: UNK
     Route: 065
  14. ASPIRIN                            /00002701/ [Concomitant]
     Active Substance: ASPIRIN
     Dosage: 75 MG, QD (DISPERSIBLE TABLETS)
     Route: 065
  15. CYCLIZINE [Concomitant]
     Active Substance: CYCLIZINE
     Dosage: 50 MG (ONE TO BE TAKEN UP TO A MAXIMUM OF THREE TIMES A DAY)
     Route: 065

REACTIONS (4)
  - Hypotension [Unknown]
  - Palpitations [Unknown]
  - Incorrect dose administered by product [Unknown]
  - Myocardial infarction [Unknown]
